FAERS Safety Report 20046946 (Version 1)
Quarter: 2021Q4

REPORT INFORMATION
  Report Type: Spontaneous
  Country: NO (occurrence: NO)
  Receive Date: 20211109
  Receipt Date: 20211109
  Transmission Date: 20220304
  Serious: Yes (Death)
  Sender: FDA-Public Use
  Company Number: NO-NOMAADVRE-RELISSO-2021-Uj445d

PATIENT
  Age: 77 Year
  Sex: Male

DRUGS (3)
  1. PANTOPRAZOLE SODIUM [Suspect]
     Active Substance: PANTOPRAZOLE SODIUM
     Indication: Jejunal ulcer perforation
     Dosage: 8 MILLIGRAM, 1DOSE/1HOUR, POWDER FOR SOLUTION FOR INFUSION
     Route: 042
     Dates: start: 20210929, end: 20211005
  2. PIPERACILLIN AND TAZOBACTAM [Suspect]
     Active Substance: PIPERACILLIN SODIUM\TAZOBACTAM SODIUM
     Indication: Mediastinitis
     Dosage: 4 GRAM, TID
     Route: 042
     Dates: start: 20210929
  3. FRAGMIN [Concomitant]
     Active Substance: DALTEPARIN SODIUM
     Indication: Product used for unknown indication
     Dosage: UNK
     Route: 058
     Dates: start: 20210926, end: 20211005

REACTIONS (1)
  - Thrombocytopenia [Fatal]

NARRATIVE: CASE EVENT DATE: 20211006
